FAERS Safety Report 6783379-5 (Version None)
Quarter: 2010Q2

REPORT INFORMATION
  Report Type: 
  Country: None (occurrence: None)
  Receive Date: 20100622
  Receipt Date: 20100618
  Transmission Date: 20101027
  Serious: Yes (Other)
  Sender: FDA-Public Use
  Company Number: DE-SANOFI-AVENTIS-2010SA035112

PATIENT
  Age: 77 Year
  Sex: Female

DRUGS (1)
  1. MULTAQ [Suspect]
     Route: 048
     Dates: start: 20100419, end: 20100516

REACTIONS (5)
  - ASTHMA [None]
  - CONDITION AGGRAVATED [None]
  - ERYTHEMA [None]
  - PRURITUS [None]
  - RASH PUSTULAR [None]
